FAERS Safety Report 9287393 (Version 2)
Quarter: 2013Q2

REPORT INFORMATION
  Report Type: Report from Study
  Country: CA (occurrence: CA)
  Receive Date: 20130514
  Receipt Date: 20130520
  Transmission Date: 20140414
  Serious: Yes (Other)
  Sender: FDA-Public Use
  Company Number: CA-ROCHE-1223900

PATIENT
  Age: 62 Year
  Sex: Male
  Weight: 73 kg

DRUGS (9)
  1. RITUXAN [Suspect]
     Indication: NON-HODGKIN^S LYMPHOMA
     Route: 042
     Dates: start: 20100310
  2. BENADRYL [Suspect]
     Route: 042
     Dates: start: 20100310
  3. DIPHENHYDRAMINE HCL [Concomitant]
     Indication: PREMEDICATION
     Route: 048
     Dates: start: 20100310, end: 20100421
  4. ACETAMINOPHEN [Concomitant]
     Indication: PREMEDICATION
     Route: 048
     Dates: start: 20100310, end: 20100421
  5. HYDROXYUREA [Concomitant]
     Route: 065
  6. ACYCLOVIR [Concomitant]
     Indication: PROPHYLAXIS
     Route: 065
  7. SULFATRIM [Concomitant]
     Indication: PROPHYLAXIS
  8. TAMSULOSIN [Concomitant]
  9. ANDROGEL [Concomitant]

REACTIONS (4)
  - Trigeminal neuralgia [Not Recovered/Not Resolved]
  - Herpes zoster [Recovered/Resolved]
  - Drug hypersensitivity [Recovered/Resolved]
  - Somnolence [Recovered/Resolved]
